FAERS Safety Report 6658106-2 (Version None)
Quarter: 2010Q1

REPORT INFORMATION
  Report Type: 
  Country: None (occurrence: None)
  Receive Date: 20100330
  Receipt Date: 20100325
  Transmission Date: 20100710
  Serious: Yes (Other)
  Sender: FDA-Public Use
  Company Number: US-ELI_LILLY_AND_COMPANY-US201003006919

PATIENT
  Sex: Female

DRUGS (7)
  1. BYETTA [Suspect]
     Indication: DIABETES MELLITUS
     Dosage: 5 UG, UNKNOWN
     Route: 058
     Dates: start: 20060101
  2. BYETTA [Suspect]
     Dosage: 10 UG, UNKNOWN
     Route: 058
     Dates: end: 20100301
  3. GLUCOPHAGE [Concomitant]
     Indication: DIABETES MELLITUS
  4. STARLIX [Concomitant]
  5. ACTOS [Concomitant]
     Indication: DIABETES MELLITUS
  6. COZAAR [Concomitant]
     Indication: HYPERTENSION
  7. BONIVA [Concomitant]
     Indication: OSTEOPOROSIS

REACTIONS (6)
  - BLOOD AMYLASE INCREASED [None]
  - BLOOD GLUCOSE INCREASED [None]
  - DRUG INEFFECTIVE [None]
  - GLYCOSYLATED HAEMOGLOBIN INCREASED [None]
  - LIPASE INCREASED [None]
  - PANCREATITIS [None]
